FAERS Safety Report 9267709 (Version 1)
Quarter: 2013Q2

REPORT INFORMATION
  Report Type: Spontaneous
  Country: US (occurrence: US)
  Receive Date: 20130502
  Receipt Date: 20130502
  Transmission Date: 20140414
  Serious: Yes (Hospitalization)
  Sender: FDA-Public Use
  Company Number: US-ALEXION-A201200845

PATIENT
  Age: 65 Year
  Sex: Female

DRUGS (11)
  1. SOLIRIS 300MG [Suspect]
     Indication: PAROXYSMAL NOCTURNAL HAEMOGLOBINURIA
     Dosage: 600 MG, QW X 4 WEEKS
     Route: 042
     Dates: start: 20120423
  2. NORVASC [Concomitant]
     Dosage: 5 MG, QD
  3. LASIX [Concomitant]
     Dosage: 20 MG, QD
  4. LISINOPRIL [Concomitant]
     Dosage: 10 MG, QD
     Dates: end: 20120430
  5. LOPRESSOR HCT [Concomitant]
     Dosage: 50/25 MG, QD
     Dates: end: 20120430
  6. NITROGLYCERIN [Concomitant]
     Dosage: 0.4 MG, Q 24 HOURS
     Route: 062
     Dates: end: 20120430
  7. ASPIRIN [Concomitant]
     Dosage: 81 MG, QD
     Route: 048
  8. CYMBALTA [Concomitant]
     Dosage: 30 MG, QD
     Route: 048
  9. CRESTOR [Concomitant]
     Dosage: 40 MG, QD
     Route: 048
  10. SYNTHROID [Concomitant]
     Dosage: 100 MG, QD
     Route: 048
  11. COLACE [Concomitant]
     Dosage: 100 MG, QD HS
     Route: 048

REACTIONS (6)
  - Dyspnoea [Recovered/Resolved]
  - Bronchitis [Unknown]
  - Pain [Unknown]
  - Fatigue [Recovered/Resolved]
  - Decreased appetite [Unknown]
  - Nasal congestion [Unknown]
